FAERS Safety Report 7609501-6 (Version None)
Quarter: 2011Q3

REPORT INFORMATION
  Report Type: 
  Country: None (occurrence: None)
  Receive Date: 20110714
  Receipt Date: 20110707
  Transmission Date: 20111222
  Serious: Yes (Hospitalization)
  Sender: FDA-Public Use
  Company Number: GXKR2011DE02232

PATIENT
  Age: 62 Year
  Sex: Female

DRUGS (25)
  1. CLOZAPINE [Suspect]
     Dosage: 200 MG, UNK
     Route: 048
     Dates: start: 20110328
  2. CLOZAPINE [Suspect]
     Dosage: 200 MG, UNK
     Route: 048
     Dates: start: 20110330, end: 20110331
  3. HALDOL [Suspect]
     Dosage: 2.5 MG, UNK
     Route: 048
     Dates: start: 20110329
  4. DIAZEPAM [Concomitant]
     Dosage: 15 MG, UNK
     Route: 048
     Dates: start: 20110322, end: 20110328
  5. GASTROZEPIN [Concomitant]
     Dosage: 100 MG, UNK
     Route: 048
  6. CLOZAPINE [Suspect]
     Dosage: 350 MG, UNK
     Route: 048
     Dates: start: 20110325, end: 20110327
  7. DIAZEPAM [Concomitant]
     Dosage: 7.5 MG, UNK
     Route: 048
     Dates: start: 20110402, end: 20110403
  8. JODID [Concomitant]
     Dosage: 0.2 MG, UNK
     Route: 048
  9. HALDOL [Suspect]
     Dosage: 10 MG, UNK
     Route: 048
     Dates: start: 20110326, end: 20110327
  10. CLOZAPINE [Suspect]
     Dosage: 150 MG, UNK
     Route: 048
     Dates: start: 20110329
  11. CLOZAPINE [Suspect]
     Dosage: 250 MG, UNK
     Route: 048
     Dates: start: 20110401, end: 20110411
  12. CLOZAPINE [Suspect]
     Dosage: 200-400MG
     Route: 048
     Dates: start: 20110405
  13. DIAZEPAM [Concomitant]
     Dosage: 10 MG, UNK
     Route: 048
     Dates: start: 20110401
  14. SIMVASTATIN [Concomitant]
     Dosage: 20 MG, UNK
     Route: 048
  15. CLOZAPINE [Suspect]
     Dosage: 250 MG, UNK
     Route: 048
     Dates: start: 20090901, end: 20110323
  16. CLOZAPINE [Suspect]
     Dosage: 400 MG, UNK
     Route: 048
     Dates: start: 20110324
  17. HALDOL [Suspect]
     Dosage: 7.5 MG, UNK
     Route: 048
     Dates: start: 20110328
  18. SAROTEN ^BAYER VITAL^ [Concomitant]
     Dosage: 125 MG, UNK
     Route: 048
  19. AKINETON [Concomitant]
     Dosage: 4 MG, UNK
     Route: 048
  20. HALDOL [Suspect]
     Dosage: 8 MG, UNK
     Route: 048
     Dates: start: 20110323
  21. HALDOL [Suspect]
     Dosage: 20 MG, UNK
     Route: 048
     Dates: start: 20110324, end: 20110325
  22. LAMOTRIGINE [Concomitant]
     Dosage: 150 MG, UNK
     Route: 048
  23. HALDOL [Suspect]
     Dosage: 4 MG, UNK
     Route: 048
     Dates: start: 20110321, end: 20110322
  24. DIAZEPAM [Concomitant]
     Dosage: 12.5 MG, UNK
     Route: 048
     Dates: start: 20110329, end: 20110330
  25. LEVOTHYROXINE SODIUM [Concomitant]
     Dosage: 25 UG, UNK
     Route: 048

REACTIONS (1)
  - PLEUROTHOTONUS [None]
